FAERS Safety Report 8561503-1 (Version None)
Quarter: 2012Q3

REPORT INFORMATION
  Report Type: 
  Country: None (occurrence: None)
  Receive Date: 20120802
  Receipt Date: 20120726
  Transmission Date: 20120928
  Serious: Yes (Other)
  Sender: FDA-Public Use
  Company Number: DE-JNJFOC-20120715369

PATIENT
  Age: 53 Year
  Sex: Female

DRUGS (8)
  1. ORENCIA [Concomitant]
     Indication: MUSCULOSKELETAL PAIN
     Dates: start: 20111101
  2. ERGOCALCIFEROL [Concomitant]
  3. METOCLOPRAMIDE [Concomitant]
  4. CALCIUM [Concomitant]
  5. AZULFIDINE [Concomitant]
     Indication: MUSCULOSKELETAL PAIN
     Dates: start: 20100601, end: 20100901
  6. REMICADE [Suspect]
     Indication: RHEUMATOID ARTHRITIS
     Dosage: TREATED WITH REMICADE 4X200 MG
     Route: 042
     Dates: start: 20110301, end: 20110808
  7. METHOTREXATE [Concomitant]
     Indication: MUSCULOSKELETAL PAIN
     Dates: start: 20100601
  8. LEFLUNOMIDE [Concomitant]
     Indication: MUSCULOSKELETAL PAIN
     Dates: start: 20100901, end: 20110301

REACTIONS (1)
  - SKIN FISSURES [None]
